FAERS Safety Report 6241593-1 (Version None)
Quarter: 2009Q2

REPORT INFORMATION
  Report Type: 
  Country: None (occurrence: None)
  Receive Date: 20090623
  Receipt Date: 20040910
  Transmission Date: 20091009
  Serious: Yes (Hospitalization, Other)
  Sender: FDA-Public Use
  Company Number: IL-ROCHE-379096

PATIENT
  Sex: Male
  Weight: 85.8 kg

DRUGS (42)
  1. VALGANCICLOVIR HCL [Suspect]
     Route: 065
     Dates: start: 20040101, end: 20040823
  2. DACLIZUMAB [Suspect]
     Dosage: WITHIN FIRST 24 HOURS POST TRANSPLANT AS PER PROTOCOL. BASELINE VISIT
     Route: 042
     Dates: start: 20040617
  3. DACLIZUMAB [Suspect]
     Dosage: TAKEN EVERY TWO WEEKS FOR FOUR DOSES.
     Route: 042
     Dates: start: 20040630, end: 20040816
  4. MYCOPHENOLATE MOFETIL [Suspect]
     Route: 048
     Dates: start: 20040617, end: 20040823
  5. MYCOPHENOLATE MOFETIL [Suspect]
     Route: 048
     Dates: start: 20040902
  6. MYCOPHENOLATE MOFETIL [Suspect]
     Route: 048
     Dates: start: 20040923
  7. MYCOPHENOLATE MOFETIL [Suspect]
     Route: 048
     Dates: start: 20041103, end: 20041214
  8. CYCLOSPORINE [Suspect]
     Dosage: DRUG NAME: CYCLOSPORIN
     Route: 048
     Dates: start: 20040617
  9. PREDNISOLONE [Suspect]
     Route: 048
     Dates: start: 20040816
  10. PREDNISONE [Suspect]
     Dosage: DRUG NAME: PREDNISON
     Route: 048
     Dates: start: 20040619, end: 20041219
  11. PREDNISONE [Suspect]
     Route: 048
     Dates: start: 20041220, end: 20050525
  12. PREDNISONE [Suspect]
     Route: 048
     Dates: start: 20050526
  13. SOLU-MEDROL [Suspect]
     Route: 042
     Dates: start: 20040617, end: 20040619
  14. SIMVASTATIN [Concomitant]
     Route: 048
     Dates: start: 20040708, end: 20040712
  15. SIMVASTATIN [Concomitant]
     Route: 048
     Dates: start: 20040823
  16. ATENOLOL [Concomitant]
     Route: 048
     Dates: start: 20040623, end: 20040719
  17. ATENOLOL [Concomitant]
     Route: 048
     Dates: start: 20040825
  18. ATENOLOL [Concomitant]
     Route: 048
     Dates: start: 20050616
  19. DOXAZOSIN MESYLATE [Concomitant]
     Route: 048
     Dates: start: 20040618, end: 20040920
  20. DOXAZOSIN MESYLATE [Concomitant]
     Route: 048
     Dates: start: 20050616
  21. COTRIMOXAZOLE [Concomitant]
     Route: 048
     Dates: start: 20040706
  22. COTRIMOXAZOLE [Concomitant]
     Route: 048
     Dates: start: 20050616
  23. FUROSEMIDE [Concomitant]
     Route: 048
     Dates: start: 20040719, end: 20040902
  24. FUROSEMIDE [Concomitant]
     Route: 048
     Dates: start: 20041001
  25. ACARBOSE [Concomitant]
     Route: 048
     Dates: start: 20040923
  26. ACARBOSE [Concomitant]
     Route: 048
     Dates: start: 20050616
  27. CHLORPROMAZINE [Concomitant]
     Dates: start: 20041115
  28. AMPICILLIN [Concomitant]
     Route: 042
     Dates: start: 20040823, end: 20040825
  29. AMPICILLIN [Concomitant]
     Route: 042
     Dates: start: 20040922, end: 20040923
  30. ATORVASTATIN CALCIUM [Concomitant]
     Route: 048
     Dates: start: 20040712, end: 20040823
  31. AZTREONAM [Concomitant]
     Dates: start: 20041107, end: 20041118
  32. CEFTRIAXONE [Concomitant]
     Route: 042
     Dates: start: 20040823, end: 20040825
  33. CEFTRIAXONE [Concomitant]
     Route: 042
     Dates: start: 20040922
  34. CHLORPROMAZINE [Concomitant]
     Route: 048
     Dates: start: 20041115
  35. ERTAPENEM [Concomitant]
     Route: 042
     Dates: start: 20040923, end: 20041007
  36. FILGRASTIM [Concomitant]
     Route: 058
     Dates: start: 20040825, end: 20040826
  37. HEPARIN [Concomitant]
     Route: 058
     Dates: start: 20040618, end: 20040702
  38. HYDROXYZINE [Concomitant]
     Route: 048
     Dates: start: 20040902, end: 20040904
  39. IMIPENEM [Concomitant]
     Route: 042
     Dates: start: 20040824, end: 20040903
  40. IMIPENEM [Concomitant]
     Route: 042
     Dates: start: 20041115, end: 20041214
  41. OFLOXACIN [Concomitant]
     Route: 048
     Dates: start: 20040914, end: 20040923
  42. PROMETHAZINE [Concomitant]
     Route: 030
     Dates: start: 20040902, end: 20040903

REACTIONS (6)
  - EPIDIDYMITIS [None]
  - FEBRILE NEUTROPENIA [None]
  - HAEMATURIA [None]
  - KAPOSI'S SARCOMA [None]
  - ORCHITIS [None]
  - URINARY TRACT INFECTION [None]
